FAERS Safety Report 5914291-9 (Version None)
Quarter: 2008Q4

REPORT INFORMATION
  Report Type: 
  Country: None (occurrence: None)
  Receive Date: 20081009
  Receipt Date: 20080929
  Transmission Date: 20090506
  Serious: Yes (Hospitalization)
  Sender: FDA-Public Use
  Company Number: IT-B.I. PHARMACEUTICALS,INC./RIDGEFIELD-2008-IT-00173IT

PATIENT
  Sex: Female

DRUGS (7)
  1. MOBIC [Suspect]
     Indication: ARTHRALGIA
     Dosage: 15 MG/1,5 ML
     Route: 030
     Dates: start: 20080901, end: 20080905
  2. TORADOL [Suspect]
     Indication: ARTHRALGIA
     Dosage: 30 MG/ML
     Route: 030
     Dates: start: 20080825, end: 20080830
  3. TACHIPIRINA [Suspect]
     Indication: BACK PAIN
     Dosage: 1000MG
     Route: 048
     Dates: start: 20080901, end: 20080907
  4. SOTALEX [Concomitant]
     Indication: HYPERTENSION
     Dosage: 80MG
     Route: 048
     Dates: start: 20050901, end: 20080905
  5. COMBISARTAN [Concomitant]
     Indication: HYPERTENSION
     Dosage: 160 MG/12,5 MG
     Route: 048
     Dates: start: 20050901, end: 20080905
  6. PLAQUENIL [Concomitant]
     Indication: RHEUMATOID ARTHRITIS
     Dosage: 400MG
     Route: 048
     Dates: start: 20060401, end: 20080905
  7. DELTACORTENE [Concomitant]
     Indication: RHEUMATOID ARTHRITIS
     Dosage: 5MG
     Route: 048
     Dates: start: 20020901, end: 20080905

REACTIONS (2)
  - EROSIVE DUODENITIS [None]
  - MELAENA [None]
